FAERS Safety Report 14516838 (Version 1)
Quarter: 2018Q1

REPORT INFORMATION
  Report Type: Spontaneous
  Country: US (occurrence: US)
  Receive Date: 20180212
  Receipt Date: 20180212
  Transmission Date: 20180509
  Serious: No
  Sender: FDA-Public Use
  Company Number: US-ASTRAZENECA-2018SE13705

PATIENT
  Sex: Female
  Weight: 145.2 kg

DRUGS (1)
  1. TUDORZA PRESSAIR [Suspect]
     Active Substance: ACLIDINIUM BROMIDE
     Route: 055
     Dates: start: 2012

REACTIONS (3)
  - Dysphonia [Not Recovered/Not Resolved]
  - Product quality issue [Unknown]
  - Underdose [Not Recovered/Not Resolved]
